FAERS Safety Report 5765061-6 (Version None)
Quarter: 2008Q2

REPORT INFORMATION
  Report Type: 
  Country: None (occurrence: None)
  Receive Date: 20080606
  Receipt Date: 20080606
  Transmission Date: 20081010
  Serious: Yes (Other)
  Sender: FDA-Public Use
  Company Number: None

PATIENT
  Age: 65 Year
  Sex: Female
  Weight: 80.7403 kg

DRUGS (1)
  1. PLAVIX [Suspect]
     Indication: COAGULOPATHY
     Dosage: 75 MG 1 A DAY

REACTIONS (1)
  - CONTUSION [None]
